FAERS Safety Report 12170617 (Version 2)
Quarter: 2016Q2

REPORT INFORMATION
  Report Type: Spontaneous
  Country: US (occurrence: US)
  Receive Date: 20160311
  Receipt Date: 20160520
  Transmission Date: 20160815
  Serious: Yes (Other)
  Sender: FDA-Public Use
  Company Number: US-TEVA-641676USA

PATIENT
  Age: 26 Year
  Sex: Female

DRUGS (4)
  1. ZECUITY [Suspect]
     Active Substance: SUMATRIPTAN SUCCINATE
     Route: 062
     Dates: start: 20160307, end: 20160307
  2. ZECUITY [Suspect]
     Active Substance: SUMATRIPTAN SUCCINATE
     Route: 062
     Dates: start: 20160229, end: 20160229
  3. ZECUITY [Suspect]
     Active Substance: SUMATRIPTAN SUCCINATE
     Route: 062
     Dates: start: 20160218, end: 20160218
  4. ZECUITY [Suspect]
     Active Substance: SUMATRIPTAN SUCCINATE
     Route: 062
     Dates: start: 20160226, end: 20160226

REACTIONS (12)
  - Chemical injury [Recovered/Resolved]
  - Application site discolouration [Recovered/Resolved]
  - Incorrect drug administration duration [Unknown]
  - Application site pain [Recovered/Resolved]
  - Incorrect drug administration duration [Unknown]
  - Application site burn [Recovered/Resolved]
  - Application site dryness [Recovered/Resolved]
  - Application site pruritus [Recovered/Resolved]
  - Application site warmth [Recovered/Resolved]
  - Product adhesion issue [Unknown]
  - Application site erythema [Recovered/Resolved]
  - Device leakage [Unknown]

NARRATIVE: CASE EVENT DATE: 20160218
